FAERS Safety Report 21799176 (Version 1)
Quarter: 2022Q4

REPORT INFORMATION
  Report Type: Spontaneous
  Country: US (occurrence: US)
  Receive Date: 20221230
  Receipt Date: 20221230
  Transmission Date: 20230112
  Serious: Yes (Death)
  Sender: FDA-Public Use
  Company Number: US-002147023-NVSC2022US300939

PATIENT
  Age: 8 Year
  Sex: Female

DRUGS (1)
  1. ILARIS [Suspect]
     Active Substance: CANAKINUMAB
     Indication: Juvenile idiopathic arthritis
     Dosage: 93 MG, (EVERY 28 DAYS)
     Route: 058
     Dates: start: 20221101, end: 20221201

REACTIONS (1)
  - Illness [Fatal]

NARRATIVE: CASE EVENT DATE: 20221220
